FAERS Safety Report 24400154 (Version 2)
Quarter: 2024Q4

REPORT INFORMATION
  Report Type: Spontaneous
  Country: CN (occurrence: CN)
  Receive Date: 20241005
  Receipt Date: 20241015
  Transmission Date: 20250114
  Serious: Yes (Life-Threatening, Hospitalization, Other)
  Sender: MACLEODS
  Company Number: CN-MACLEODS PHARMA-MAC2024049610

PATIENT

DRUGS (31)
  1. ESCITALOPRAM [Suspect]
     Active Substance: ESCITALOPRAM OXALATE
     Indication: Depressive symptom
     Route: 065
     Dates: start: 20230717, end: 20230720
  2. ESCITALOPRAM [Suspect]
     Active Substance: ESCITALOPRAM OXALATE
     Route: 065
     Dates: start: 20230721, end: 20230724
  3. ESCITALOPRAM [Suspect]
     Active Substance: ESCITALOPRAM OXALATE
     Route: 065
     Dates: start: 20230728, end: 20230807
  4. ESCITALOPRAM [Suspect]
     Active Substance: ESCITALOPRAM OXALATE
     Route: 065
     Dates: start: 20230725, end: 20230727
  5. ESCITALOPRAM [Suspect]
     Active Substance: ESCITALOPRAM OXALATE
     Route: 065
     Dates: start: 20230808, end: 20230810
  6. ESCITALOPRAM [Suspect]
     Active Substance: ESCITALOPRAM OXALATE
     Route: 065
     Dates: start: 20230811, end: 20230813
  7. ESCITALOPRAM [Suspect]
     Active Substance: ESCITALOPRAM OXALATE
     Route: 065
     Dates: end: 20230814
  8. BENSERAZIDE HYDROCHLORIDE\LEVODOPA [Suspect]
     Active Substance: BENSERAZIDE HYDROCHLORIDE\LEVODOPA
     Indication: Depression
     Dosage: 6 DAYS
     Route: 065
     Dates: start: 20230825, end: 20230831
  9. BENSERAZIDE HYDROCHLORIDE\LEVODOPA [Suspect]
     Active Substance: BENSERAZIDE HYDROCHLORIDE\LEVODOPA
     Indication: Parkinson^s disease psychosis
     Dosage: 18 DAYS
     Route: 065
     Dates: start: 20230719, end: 20230806
  10. BENSERAZIDE HYDROCHLORIDE\LEVODOPA [Suspect]
     Active Substance: BENSERAZIDE HYDROCHLORIDE\LEVODOPA
     Dosage: 19 DAYS
     Route: 065
     Dates: start: 20230719, end: 20230807
  11. BENSERAZIDE HYDROCHLORIDE\LEVODOPA [Suspect]
     Active Substance: BENSERAZIDE HYDROCHLORIDE\LEVODOPA
     Dosage: 2 DAYS
     Route: 065
     Dates: start: 20231001, end: 20231003
  12. BENSERAZIDE HYDROCHLORIDE\LEVODOPA [Suspect]
     Active Substance: BENSERAZIDE HYDROCHLORIDE\LEVODOPA
     Dosage: 6 DAYS
     Route: 065
     Dates: start: 20230825, end: 20230831
  13. BENSERAZIDE HYDROCHLORIDE\LEVODOPA [Suspect]
     Active Substance: BENSERAZIDE HYDROCHLORIDE\LEVODOPA
     Route: 065
     Dates: start: 20230717, end: 20230718
  14. BENSERAZIDE HYDROCHLORIDE\LEVODOPA [Suspect]
     Active Substance: BENSERAZIDE HYDROCHLORIDE\LEVODOPA
     Dosage: 16 DAYS
     Route: 065
     Dates: start: 20230914, end: 20230930
  15. BENSERAZIDE HYDROCHLORIDE\LEVODOPA [Suspect]
     Active Substance: BENSERAZIDE HYDROCHLORIDE\LEVODOPA
     Dosage: 2 DAYS
     Route: 065
     Dates: start: 20230714, end: 20230716
  16. BENSERAZIDE HYDROCHLORIDE\LEVODOPA [Suspect]
     Active Substance: BENSERAZIDE HYDROCHLORIDE\LEVODOPA
     Route: 065
     Dates: start: 20230914, end: 20230930
  17. BENSERAZIDE HYDROCHLORIDE\LEVODOPA [Suspect]
     Active Substance: BENSERAZIDE HYDROCHLORIDE\LEVODOPA
     Dosage: 16 DAYS
     Route: 065
     Dates: start: 20230914, end: 20230930
  18. BENSERAZIDE HYDROCHLORIDE\LEVODOPA [Suspect]
     Active Substance: BENSERAZIDE HYDROCHLORIDE\LEVODOPA
     Dosage: 12 DAYS
     Route: 065
     Dates: start: 20230901, end: 20230913
  19. BENSERAZIDE HYDROCHLORIDE\LEVODOPA [Suspect]
     Active Substance: BENSERAZIDE HYDROCHLORIDE\LEVODOPA
     Dosage: 6 DAYS
     Route: 065
     Dates: start: 20230807, end: 20230813
  20. QUETIAPINE [Concomitant]
     Active Substance: QUETIAPINE
     Indication: Depression
     Route: 065
     Dates: start: 20230714, end: 20230716
  21. QUETIAPINE [Concomitant]
     Active Substance: QUETIAPINE
     Route: 065
     Dates: start: 20230719, end: 20230724
  22. QUETIAPINE [Concomitant]
     Active Substance: QUETIAPINE
     Route: 065
     Dates: start: 20230725, end: 20230807
  23. QUETIAPINE [Concomitant]
     Active Substance: QUETIAPINE
     Route: 065
     Dates: start: 20230808, end: 20230813
  24. QUETIAPINE [Concomitant]
     Active Substance: QUETIAPINE
     Route: 065
     Dates: start: 20230717, end: 20230718
  25. QUETIAPINE [Concomitant]
     Active Substance: QUETIAPINE
     Route: 065
     Dates: end: 20230814
  26. VITAMIN C [Concomitant]
     Active Substance: ASCORBIC ACID
     Indication: Product used for unknown indication
     Route: 042
  27. POTASSIUM CHLORIDE [Concomitant]
     Active Substance: POTASSIUM CHLORIDE
     Indication: Product used for unknown indication
     Route: 042
  28. VITAMIN B6 [Concomitant]
     Active Substance: PYRIDOXINE HYDROCHLORIDE
     Indication: Product used for unknown indication
     Route: 065
  29. TRIHEXYPHENIDYL [Concomitant]
     Active Substance: TRIHEXYPHENIDYL
     Indication: Product used for unknown indication
     Route: 065
     Dates: start: 20230810
  30. TRIHEXYPHENIDYL [Concomitant]
     Active Substance: TRIHEXYPHENIDYL
     Route: 065
     Dates: start: 20230811, end: 20230813
  31. TRIHEXYPHENIDYL [Concomitant]
     Active Substance: TRIHEXYPHENIDYL
     Route: 065
     Dates: start: 20230814, end: 20230817

REACTIONS (4)
  - CYP2C19 polymorphism [Recovering/Resolving]
  - Drug level increased [Recovering/Resolving]
  - Serotonin syndrome [Recovering/Resolving]
  - Overdose [Unknown]

NARRATIVE: CASE EVENT DATE: 20230808
